FAERS Safety Report 21416592 (Version 1)
Quarter: 2022Q4

REPORT INFORMATION
  Report Type: Spontaneous
  Country: SE (occurrence: SE)
  Receive Date: 20221006
  Receipt Date: 20221006
  Transmission Date: 20230113
  Serious: Yes (Hospitalization)
  Sender: FDA-Public Use
  Company Number: None

PATIENT
  Age: 89 Year
  Sex: Female

DRUGS (10)
  1. GABAPENTIN [Suspect]
     Active Substance: GABAPENTIN
     Indication: Product used for unknown indication
     Route: 065
  2. OXYCODONE [Concomitant]
     Active Substance: OXYCODONE
     Indication: Product used for unknown indication
     Dosage: 1 CAPSULE IF NEEDED, MAXIMUM FOUR CAPSULES PER DAY.
     Dates: start: 20220830
  3. OXYCODONE [Concomitant]
     Active Substance: OXYCODONE
     Dosage: UNIT DOSE: 10MG; FREQUENCY TIME: 1DAY
     Dates: start: 20220830
  4. SODIUM PICOSULFATE [Concomitant]
     Active Substance: SODIUM PICOSULFATE
     Indication: Product used for unknown indication
     Dosage: MAXIMUM 30 DROPS AT NIGHT IF NECESSARY FOR 4 WEEKS . FORM STRENGTH : 7.5 MG/ML
     Dates: start: 20220823
  5. VAGIFEM [Concomitant]
     Active Substance: ESTRADIOL
     Indication: Product used for unknown indication
     Dosage: UNIT DOSE : 10 MICROGRAM  , FREQUENCY TIME : 1 WEEKS
     Dates: start: 20171204
  6. Furix [Concomitant]
     Indication: Product used for unknown indication
     Dosage: UNIT DOSE : 20 MG , FREQUENCY TIME : 1 AS REQUIRED
     Dates: start: 20181219
  7. ACETYLCYSTEINE [Concomitant]
     Active Substance: ACETYLCYSTEINE
     Indication: Product used for unknown indication
     Dosage: FREQUENCY TIME : 1 AS REQUIRED
     Dates: start: 20210108
  8. ACETAMINOPHEN [Concomitant]
     Active Substance: ACETAMINOPHEN
     Indication: Product used for unknown indication
     Dosage: FORM STRENGTH : 500 MG , UNIT DOSE : 3 GRAM , FREQUENCY TIME : 1 DAY
     Dates: start: 20220812
  9. MOVICOL [Concomitant]
     Active Substance: POLYETHYLENE GLYCOL 3350\POTASSIUM CHLORIDE\SODIUM BICARBONATE\SODIUM CHLORIDE
     Indication: Product used for unknown indication
     Dosage: 1-2 SACHETS ONCE DAILY, POWDER FOR ORAL SOLUTION IN SACHET
     Dates: start: 20220821
  10. JANUVIA [Concomitant]
     Active Substance: SITAGLIPTIN PHOSPHATE
     Indication: Product used for unknown indication
     Dosage: FORM STRENGTH : 50 MG , UNIT DOSE : 50 MG , FREQUENCY TIME : 1 DAY
     Dates: start: 20200129

REACTIONS (2)
  - Urinary tract infection [Unknown]
  - General physical health deterioration [Recovered/Resolved]

NARRATIVE: CASE EVENT DATE: 20220101
